FAERS Safety Report 4415066-2 (Version None)
Quarter: 2004Q3

REPORT INFORMATION
  Report Type: 
  Country: None (occurrence: None)
  Receive Date: 20040729
  Receipt Date: 20040625
  Transmission Date: 20050211
  Serious: Yes (Other)
  Sender: FDA-Public Use
  Company Number: 2004UW13255

PATIENT
  Age: 63 Year
  Sex: Male
  Weight: 72.5755 kg

DRUGS (6)
  1. IRESSA [Suspect]
     Indication: LUNG NEOPLASM MALIGNANT
     Dosage: 250 MG DAILY PO
     Route: 048
  2. IRESSA [Suspect]
     Indication: LUNG NEOPLASM MALIGNANT
     Dosage: 500 MG DAILY PO
     Route: 048
     Dates: start: 20040601, end: 20040601
  3. ALLEGRA [Concomitant]
  4. ALTACE [Concomitant]
  5. TOPROL-XL [Concomitant]
  6. LIPITOR [Concomitant]

REACTIONS (1)
  - MEDICATION ERROR [None]
